FAERS Safety Report 11588385 (Version 1)
Quarter: 2015Q4

REPORT INFORMATION
  Report Type: Spontaneous
  Country: US (occurrence: None)
  Receive Date: 20151001
  Receipt Date: 20151001
  Transmission Date: 20160304
  Serious: No
  Sender: FDA-Public Use
  Company Number: None

PATIENT
  Age: 29 Year
  Sex: Male

DRUGS (1)
  1. HUMIRA [Suspect]
     Active Substance: ADALIMUMAB
     Indication: CROHN^S DISEASE
     Dosage: 2 PENS ON DAY 1, 2 PENS ON DAY 2 THEN

REACTIONS (2)
  - Headache [None]
  - Rhinorrhoea [None]

NARRATIVE: CASE EVENT DATE: 20150912
